FAERS Safety Report 6755858-8 (Version None)
Quarter: 2010Q2

REPORT INFORMATION
  Report Type: 
  Country: None (occurrence: None)
  Receive Date: 20100604
  Receipt Date: 20100531
  Transmission Date: 20101027
  Serious: Yes (Hospitalization)
  Sender: FDA-Public Use
  Company Number: DE-NAPPMUNDI-DEU-2010-0006299

PATIENT
  Age: 66 Year
  Sex: Male
  Weight: 79 kg

DRUGS (13)
  1. MSI 10 MG MUNDIPHARMA [Suspect]
     Indication: DRUG USE FOR UNKNOWN INDICATION
     Dosage: 10 MG, TID
     Route: 058
     Dates: end: 20070602
  2. MSI 10 MG MUNDIPHARMA [Suspect]
     Dosage: 10 MG, TID
     Route: 058
     Dates: start: 20070608, end: 20070609
  3. PALLADONE [Suspect]
     Indication: DRUG USE FOR UNKNOWN INDICATION
     Dosage: 8 MG, TID
     Route: 048
     Dates: start: 20070602, end: 20070604
  4. MSI 10 MG MUNDIPHARMA [Concomitant]
  5. PALLADON RETARD 8 MG [Concomitant]
  6. NEXIUM-MUPS                        /01479302/ [Concomitant]
  7. MCP AL [Concomitant]
  8. LAXANS                             /00064401/ [Concomitant]
  9. LAKTULOSE [Concomitant]
  10. KALINOR-BRAUSETABLETTEN [Concomitant]
  11. MUTAFLOR [Concomitant]
  12. DIPIDOLOR [Concomitant]
  13. BRYOPHYLLUM ARG CUL D2 [Concomitant]

REACTIONS (1)
  - FAECALOMA [None]
